FAERS Safety Report 5009520-2 (Version None)
Quarter: 2006Q2

REPORT INFORMATION
  Report Type: 
  Country: None (occurrence: None)
  Receive Date: 20060522
  Receipt Date: 20060428
  Transmission Date: 20061013
  Serious: Yes (Other)
  Sender: FDA-Public Use
  Company Number: 2006PV012912

PATIENT
  Age: 49 Year
  Sex: Female
  Weight: 90.7194 kg

DRUGS (4)
  1. BYETTA [Suspect]
     Indication: DIABETES MELLITUS
     Dosage: 10 + 5 MCG; BID; SC
     Route: 058
     Dates: start: 20050801, end: 20050801
  2. BYETTA [Suspect]
     Indication: DIABETES MELLITUS
     Dosage: 10 + 5 MCG; BID; SC
     Route: 058
     Dates: start: 20050801
  3. METFORMIN [Concomitant]
  4. GLYBURIDE [Concomitant]

REACTIONS (6)
  - BLOOD GLUCOSE INCREASED [None]
  - DIZZINESS [None]
  - DRUG INEFFECTIVE [None]
  - LOSS OF CONSCIOUSNESS [None]
  - NAUSEA [None]
  - SYNCOPE [None]
